FAERS Safety Report 7051919-7 (Version None)
Quarter: 2010Q4

REPORT INFORMATION
  Report Type: 
  Country: None (occurrence: None)
  Receive Date: 20101018
  Receipt Date: 20101018
  Transmission Date: 20110411
  Serious: Yes (Other)
  Sender: FDA-Public Use
  Company Number: None

PATIENT
  Age: 60 Year
  Sex: Male
  Weight: 172.3669 kg

DRUGS (1)
  1. MERIDIA [Suspect]
     Indication: OBESITY
     Dosage: 1 DAILY PO
     Route: 048
     Dates: start: 20090315, end: 20100915

REACTIONS (2)
  - CARDIOVASCULAR DISORDER [None]
  - VITH NERVE PARALYSIS [None]
